FAERS Safety Report 24949744 (Version 1)
Quarter: 2025Q1

REPORT INFORMATION
  Report Type: Spontaneous
  Country: US (occurrence: None)
  Receive Date: 20250209
  Receipt Date: 20250209
  Transmission Date: 20250409
  Serious: Yes (Disabling)
  Sender: FDA-CTU
  Company Number: None

PATIENT
  Age: 68 Year
  Sex: Male
  Weight: 78.75 kg

DRUGS (2)
  1. NALOXONE [Suspect]
     Active Substance: NALOXONE
     Indication: Drug therapy
     Route: 042
     Dates: start: 20210725, end: 20210726
  2. AMBIEN [Suspect]
     Active Substance: ZOLPIDEM TARTRATE

REACTIONS (5)
  - Victim of abuse [None]
  - Product administered from unauthorised provider [None]
  - Tinnitus [None]
  - Neuropathy peripheral [None]
  - Muscular weakness [None]

NARRATIVE: CASE EVENT DATE: 20210725
